FAERS Safety Report 10309298 (Version 1)
Quarter: 2014Q3

REPORT INFORMATION
  Report Type: Spontaneous
  Country: US (occurrence: None)
  Receive Date: 20140714
  Receipt Date: 20140714
  Transmission Date: 20150326
  Serious: Yes (Other)
  Sender: FDA-Public Use
  Company Number: UNT-2014-003472

PATIENT
  Age: 80 Year
  Sex: Male

DRUGS (1)
  1. REMODULIN [Suspect]
     Active Substance: TREPROSTINIL
     Indication: COR PULMONALE CHRONIC
     Route: 058
     Dates: start: 20140122

REACTIONS (5)
  - Infusion site erythema [None]
  - Infusion site induration [None]
  - Inguinal hernia [None]
  - Infusion site pain [None]
  - Infusion site reaction [None]

NARRATIVE: CASE EVENT DATE: 201406
